FAERS Safety Report 8911372 (Version 1)
Quarter: 2012Q4

REPORT INFORMATION
  Report Type: Spontaneous
  Country: GB (occurrence: None)
  Receive Date: 20121113
  Receipt Date: 20121113
  Transmission Date: 20130627
  Serious: Yes (Other)
  Sender: FDA-Public Use
  Company Number: 2012MA013005

PATIENT

DRUGS (2)
  1. DIAZEPAM [Suspect]
  2. METHADONE [Suspect]

REACTIONS (3)
  - Apathy [None]
  - Disorientation [None]
  - Nuclear magnetic resonance imaging brain abnormal [None]
